FAERS Safety Report 24466977 (Version 1)
Quarter: 2024Q4

REPORT INFORMATION
  Report Type: Report from Study
  Country: US (occurrence: US)
  Receive Date: 20241018
  Receipt Date: 20241018
  Transmission Date: 20250115
  Serious: No
  Sender: ROCHE
  Company Number: US-ROCHE-3553371

PATIENT
  Age: 56 Year
  Sex: Female
  Weight: 70.31 kg

DRUGS (7)
  1. XOLAIR [Suspect]
     Active Substance: OMALIZUMAB
     Indication: Asthma
     Route: 058
  2. ALBUTEROL SULFATE [Concomitant]
     Active Substance: ALBUTEROL SULFATE
  3. AZELASTINE HYDROCHLORIDE [Concomitant]
     Active Substance: AZELASTINE HYDROCHLORIDE
  4. BUPROPION [Concomitant]
     Active Substance: BUPROPION
  5. DULOXETINE [Concomitant]
     Active Substance: DULOXETINE
  6. IPRATROPIUM [Concomitant]
     Active Substance: IPRATROPIUM
  7. TRAMADOL [Concomitant]
     Active Substance: TRAMADOL

REACTIONS (3)
  - Blood immunoglobulin E increased [Unknown]
  - Rhinitis allergic [Unknown]
  - Migraine [Unknown]
